FAERS Safety Report 8373400-5 (Version None)
Quarter: 2012Q2

REPORT INFORMATION
  Report Type: 
  Country: None (occurrence: None)
  Receive Date: 20120521
  Receipt Date: 20120510
  Transmission Date: 20120825
  Serious: Yes (Other)
  Sender: FDA-Public Use
  Company Number: CA-ASTRAZENECA-2012SE20202

PATIENT
  Age: 70 Year
  Sex: Male

DRUGS (4)
  1. RABEPRAZOLE SODIUM [Concomitant]
  2. CRESTOR [Suspect]
     Route: 048
     Dates: start: 20100301
  3. DOXEPIN HCL [Concomitant]
  4. OXYCODONE HCL AND ACETAMINOPHEN [Concomitant]
     Dosage: PRN

REACTIONS (2)
  - CARDIOMEGALY [None]
  - PULMONARY FIBROSIS [None]
